FAERS Safety Report 4300856-7 (Version None)
Quarter: 2004Q1

REPORT INFORMATION
  Report Type: 
  Country: None (occurrence: None)
  Receive Date: 20040219
  Receipt Date: 20040128
  Transmission Date: 20041129
  Serious: Yes (Death)
  Sender: FDA-Public Use
  Company Number: HK-JNJFOC-20040201532

PATIENT
  Age: 23 Year
  Sex: Male
  Weight: 58.5 kg

DRUGS (3)
  1. ITRACONAZOLE [Suspect]
     Indication: SYSTEMIC MYCOSIS
     Dosage: SEE IMAGE
     Route: 042
     Dates: start: 20030626, end: 20030627
  2. ITRACONAZOLE [Suspect]
     Indication: SYSTEMIC MYCOSIS
     Dosage: SEE IMAGE
     Route: 042
     Dates: start: 20030628, end: 20030710
  3. ITRACONAZOLE [Suspect]
     Indication: SYSTEMIC MYCOSIS
     Dosage: 200 MG, IN 1 DAY, ORAL
     Route: 048
     Dates: start: 20030711, end: 20030728

REACTIONS (6)
  - ACUTE LYMPHOCYTIC LEUKAEMIA [None]
  - DYSPNOEA EXERTIONAL [None]
  - LEUKAEMIA RECURRENT [None]
  - PLEURAL EFFUSION [None]
  - PYREXIA [None]
  - STEM CELL TRANSPLANT [None]
